FAERS Safety Report 11242639 (Version 1)
Quarter: 2015Q3

REPORT INFORMATION
  Report Type: Spontaneous
  Country: US (occurrence: None)
  Receive Date: 20150706
  Receipt Date: 20150706
  Transmission Date: 20151125
  Serious: No
  Sender: FDA-Public Use
  Company Number: None

PATIENT
  Age: 63 Year
  Sex: Female
  Weight: 77.11 kg

DRUGS (1)
  1. ARM AND HAMMER ORAJEL SENSITIVE FRESHENING WITH FLAVOR BURST [Suspect]
     Active Substance: POTASSIUM NITRATE\SODIUM FLUORIDE
     Indication: DENTAL CARE

REACTIONS (4)
  - Lip exfoliation [None]
  - Oral discomfort [None]
  - Lip ulceration [None]
  - Lip swelling [None]
